FAERS Safety Report 8858972 (Version 1)
Quarter: 2012Q4

REPORT INFORMATION
  Report Type: 
  Country: US (occurrence: US)
  Receive Date: 20121024
  Receipt Date: 20121024
  Transmission Date: 20130627
  Serious: No
  Sender: FDA-Public Use
  Company Number: US-009507513-1210USA006341

PATIENT
  Age: 85 Year
  Sex: Female

DRUGS (3)
  1. DULERA [Suspect]
     Indication: BRONCHOSPASM
     Dosage: 200/5, one puff twice a day
     Route: 045
     Dates: start: 20121009
  2. THERAPY UNSPECIFIED [Concomitant]
  3. THERAPY UNSPECIFIED [Concomitant]
     Dosage: UNK UNK,

REACTIONS (1)
  - Drug ineffective [Unknown]
